FAERS Safety Report 9094640 (Version 1)
Quarter: 2013Q1

REPORT INFORMATION
  Report Type: Spontaneous
  Country: GB (occurrence: GB)
  Receive Date: 20130219
  Receipt Date: 20130219
  Transmission Date: 20140127
  Serious: Yes (Other)
  Sender: FDA-Public Use
  Company Number: GB-PFIZER INC-2013057348

PATIENT
  Sex: Female

DRUGS (1)
  1. RAMIPRIL [Suspect]

REACTIONS (5)
  - Medication error [Unknown]
  - Dysphagia [Unknown]
  - Oesophageal pain [Unknown]
  - Diarrhoea [Unknown]
  - Product quality issue [Unknown]
